FAERS Safety Report 5362590-4 (Version None)
Quarter: 2007Q2

REPORT INFORMATION
  Report Type: 
  Country: None (occurrence: None)
  Receive Date: 20070619
  Receipt Date: 20070607
  Transmission Date: 20071010
  Serious: Yes (Other)
  Sender: FDA-Public Use
  Company Number: JP-PFIZER INC-2007048422

PATIENT
  Sex: Female

DRUGS (1)
  1. ALDACTONE [Suspect]
     Route: 048

REACTIONS (1)
  - GENITAL HAEMORRHAGE [None]
